FAERS Safety Report 19682055 (Version 1)
Quarter: 2021Q3

REPORT INFORMATION
  Report Type: Spontaneous
  Country: FR (occurrence: FR)
  Receive Date: 20210810
  Receipt Date: 20210810
  Transmission Date: 20211014
  Serious: Yes (Hospitalization, Other)
  Sender: FDA-Public Use
  Company Number: FR-SA-2021SA263682

PATIENT
  Age: 68 Year
  Sex: Male
  Weight: 179 kg

DRUGS (1)
  1. DUPIXENT [Suspect]
     Active Substance: DUPILUMAB
     Indication: ASTHMA
     Dosage: 300 MG, Q15D
     Route: 058
     Dates: start: 202101

REACTIONS (1)
  - Atrial fibrillation [Recovered/Resolved]
